FAERS Safety Report 17145930 (Version 1)
Quarter: 2019Q4

REPORT INFORMATION
  Report Type: Spontaneous
  Country: HR (occurrence: HR)
  Receive Date: 20191212
  Receipt Date: 20191212
  Transmission Date: 20200122
  Serious: Yes (Other)
  Sender: FDA-Public Use
  Company Number: HR-TEVA-2019-HR-1149769

PATIENT
  Age: 70 Year
  Sex: Male

DRUGS (4)
  1. PIRAMIL HL [Concomitant]
     Indication: HYPERTENSION
     Dosage: 1 DOSAGE FORMS 1 DAYS
     Route: 048
  2. VASILIP [Concomitant]
     Active Substance: SIMVASTATIN
     Indication: DYSLIPIDAEMIA
     Dosage: 1 IN THE EVENING , 20 MG
     Route: 048
  3. HELEX [Concomitant]
     Active Substance: ALPRAZOLAM
     Indication: ANXIETY
     Dosage: 0.5 MG 1 DAYS
     Route: 048
  4. ZIPANTOLA [Suspect]
     Active Substance: PANTOPRAZOLE SODIUM
     Indication: DYSPEPSIA
     Dosage: 40 MG 1 DAYS
     Route: 048
     Dates: start: 2019

REACTIONS (1)
  - Gastric polyps [Recovered/Resolved]

NARRATIVE: CASE EVENT DATE: 20190905
